FAERS Safety Report 4540128-9 (Version None)
Quarter: 2004Q4

REPORT INFORMATION
  Report Type: 
  Country: None (occurrence: None)
  Receive Date: 20041222
  Receipt Date: 20041209
  Transmission Date: 20050328
  Serious: Yes (Disabling)
  Sender: FDA-Public Use
  Company Number: 200411026

PATIENT
  Age: 84 Year
  Sex: Female

DRUGS (3)
  1. GATIFLOXACIN [Suspect]
     Indication: KERATITIS
     Dates: start: 20040901
  2. FLUMETHOLON [Concomitant]
  3. HYALEIN [Concomitant]

REACTIONS (1)
  - CORNEAL PERFORATION [None]
